FAERS Safety Report 11689130 (Version 1)
Quarter: 2015Q4

REPORT INFORMATION
  Report Type: Spontaneous
  Country: US (occurrence: US)
  Receive Date: 20151102
  Receipt Date: 20151102
  Transmission Date: 20160304
  Serious: No
  Sender: FDA-Public Use
  Company Number: US-ASTRAZENECA-2015SF03040

PATIENT
  Age: 577 Month
  Sex: Female
  Weight: 72.6 kg

DRUGS (20)
  1. PLAVIX [Concomitant]
     Active Substance: CLOPIDOGREL BISULFATE
     Indication: PROPHYLAXIS
     Route: 048
     Dates: start: 201506
  2. CYMBALTA [Concomitant]
     Active Substance: DULOXETINE HYDROCHLORIDE
     Route: 048
     Dates: start: 201508
  3. CITRUCEL [Concomitant]
     Active Substance: METHYLCELLULOSE (4000 MPA.S)
     Route: 048
     Dates: start: 201503
  4. NEXIUM [Suspect]
     Active Substance: ESOMEPRAZOLE MAGNESIUM
     Indication: ULCER
     Route: 048
     Dates: start: 201503
  5. PRILOSEC [Suspect]
     Active Substance: OMEPRAZOLE MAGNESIUM
     Indication: GASTRIC PERFORATION
     Route: 048
     Dates: end: 2013
  6. LIPITOR [Concomitant]
     Active Substance: ATORVASTATIN CALCIUM
     Indication: PROPHYLAXIS
     Route: 048
     Dates: start: 201506
  7. DICYCLOMINE [Concomitant]
     Active Substance: DICYCLOMINE HYDROCHLORIDE
     Route: 048
     Dates: start: 200310
  8. TAPAZOLE [Concomitant]
     Active Substance: METHIMAZOLE
     Indication: HYPOTHYROIDISM
     Route: 048
     Dates: start: 200710
  9. MIRALAX [Concomitant]
     Active Substance: POLYETHYLENE GLYCOL 3350
     Route: 048
     Dates: start: 201503
  10. PRILOSEC [Suspect]
     Active Substance: OMEPRAZOLE MAGNESIUM
     Indication: GASTRIC PERFORATION
     Dosage: GENERIC
     Route: 048
     Dates: end: 2013
  11. FLEXERIL [Concomitant]
     Active Substance: CYCLOBENZAPRINE HYDROCHLORIDE
     Route: 048
     Dates: start: 201410
  12. FENTANYL. [Concomitant]
     Active Substance: FENTANYL
     Route: 062
     Dates: start: 200910
  13. MULTIVITAMIN [Concomitant]
     Active Substance: VITAMINS
     Dosage: 2 DAILY
     Route: 048
     Dates: start: 200010
  14. IMITRIX [Concomitant]
     Route: 048
     Dates: start: 201210
  15. NEXIUM [Suspect]
     Active Substance: ESOMEPRAZOLE MAGNESIUM
     Indication: ULCER
     Route: 048
     Dates: start: 2005
  16. VITAMIN D [Concomitant]
     Active Substance: CHOLECALCIFEROL
     Route: 048
     Dates: start: 201210
  17. KLONOPIN [Concomitant]
     Active Substance: CLONAZEPAM
     Route: 048
     Dates: start: 201210
  18. HYDROCODONE [Concomitant]
     Active Substance: HYDROCODONE
     Route: 048
     Dates: start: 201410
  19. REMERON [Concomitant]
     Active Substance: MIRTAZAPINE
     Indication: SLEEP DISORDER
     Route: 048
     Dates: start: 201509
  20. CALTRATE [Concomitant]
     Active Substance: CALCIUM CARBONATE
     Route: 048
     Dates: start: 201110

REACTIONS (7)
  - Drug ineffective [Unknown]
  - Gastric ulcer [Unknown]
  - Memory impairment [Unknown]
  - Blood count abnormal [Recovered/Resolved]
  - Abdominal pain upper [Recovered/Resolved]
  - Off label use [Not Recovered/Not Resolved]
  - Malaise [Unknown]

NARRATIVE: CASE EVENT DATE: 201210
